FAERS Safety Report 15323275 (Version 1)
Quarter: 2018Q3

REPORT INFORMATION
  Report Type: Spontaneous
  Country: BE (occurrence: BE)
  Receive Date: 20180827
  Receipt Date: 20180827
  Transmission Date: 20181010
  Serious: Yes (Other)
  Sender: FDA-Public Use
  Company Number: PHHY2014BE185269

PATIENT
  Age: 66 Year
  Sex: Female

DRUGS (11)
  1. TETRAZEPAM [Suspect]
     Active Substance: TETRAZEPAM
     Indication: ACCIDENTAL EXPOSURE TO PRODUCT
     Dosage: UNK UNK,UNK
     Route: 065
  2. BROMAZEPAM [Suspect]
     Active Substance: BROMAZEPAM
     Indication: SKIN TEST
     Dosage: UNK
     Route: 065
  3. LORAZEPAM. [Suspect]
     Active Substance: LORAZEPAM
     Indication: ACCIDENTAL EXPOSURE TO PRODUCT
     Dosage: UNK
     Route: 065
  4. OMEPRAZOLE. [Suspect]
     Active Substance: OMEPRAZOLE
     Indication: ACCIDENTAL EXPOSURE TO PRODUCT
     Dosage: UNK
     Route: 065
  5. SELOZOK [Suspect]
     Active Substance: METOPROLOL SUCCINATE
     Indication: ACCIDENTAL EXPOSURE TO PRODUCT
     Dosage: UNK UNK,UNK
     Route: 065
  6. LEVODOPA [Suspect]
     Active Substance: LEVODOPA
     Indication: ACCIDENTAL EXPOSURE TO PRODUCT
     Dosage: UNK UNK,UNK
     Route: 065
  7. DIAZEPAM. [Suspect]
     Active Substance: DIAZEPAM
     Indication: ACCIDENTAL EXPOSURE TO PRODUCT
     Dosage: UNK UNK,UNK
     Route: 065
  8. CLOZAPINE. [Suspect]
     Active Substance: CLOZAPINE
     Indication: ACCIDENTAL EXPOSURE TO PRODUCT
     Dosage: UNK
     Route: 065
  9. ROPINIROLE. [Suspect]
     Active Substance: ROPINIROLE
     Indication: ACCIDENTAL EXPOSURE TO PRODUCT
     Dosage: UNK UNK,UNK
     Route: 065
  10. CLOTIAZEPAM [Suspect]
     Active Substance: CLOTIAZEPAM
     Indication: SKIN TEST
     Dosage: UNK
     Route: 065
  11. TRAZODONE HYDROCHLORIDE. [Suspect]
     Active Substance: TRAZODONE HYDROCHLORIDE
     Indication: ACCIDENTAL EXPOSURE TO PRODUCT
     Route: 065

REACTIONS (9)
  - Pruritus [Recovered/Resolved]
  - Burning sensation [Recovered/Resolved]
  - Accidental exposure to product [Unknown]
  - Eczema eyelids [Recovered/Resolved]
  - Dermatitis contact [Recovered/Resolved]
  - Wrong technique in product usage process [Unknown]
  - Eczema [Recovered/Resolved]
  - Therapeutic product cross-reactivity [Recovered/Resolved]
  - Dermatitis [Recovered/Resolved]

NARRATIVE: CASE EVENT DATE: 2009
